FAERS Safety Report 8369268-3 (Version None)
Quarter: 2012Q2

REPORT INFORMATION
  Report Type: 
  Country: None (occurrence: None)
  Receive Date: 20120518
  Receipt Date: 20120511
  Transmission Date: 20120825
  Serious: Yes (Hospitalization, Other)
  Sender: FDA-Public Use
  Company Number: PHHY2012BR041259

PATIENT
  Sex: Female

DRUGS (3)
  1. TEGRETOL-XR [Suspect]
     Dosage: 3 DF, DAILY
     Dates: start: 20111101
  2. TEGRETOL-XR [Suspect]
     Dosage: 3.5 DF, DAILY
  3. TEGRETOL-XR [Suspect]
     Dosage: 0.5 DF, DAILY

REACTIONS (3)
  - DRUG INEFFECTIVE [None]
  - EPILEPSY [None]
  - COMPULSIONS [None]
